FAERS Safety Report 5778661-4 (Version None)
Quarter: 2008Q2

REPORT INFORMATION
  Report Type: 
  Country: None (occurrence: None)
  Receive Date: 20080619
  Receipt Date: 20080617
  Transmission Date: 20081010
  Serious: Yes (Hospitalization)
  Sender: FDA-Public Use
  Company Number: B0513913B

PATIENT
  Age: 64 Year
  Sex: Female
  Weight: 61.2 kg

DRUGS (9)
  1. LAPATINIB [Suspect]
     Dosage: 1250MG PER DAY
     Route: 048
     Dates: start: 20080301, end: 20080514
  2. CAPECITABINE [Suspect]
     Dosage: 1650MG TWICE PER DAY
     Route: 048
     Dates: start: 20080301, end: 20080509
  3. AMITRIPTYLINE HCL [Concomitant]
     Dosage: 25MG PER DAY
     Route: 048
  4. LANSOPRAZOLE [Concomitant]
     Dosage: 30MG PER DAY
     Route: 048
  5. ATENOLOL [Concomitant]
     Indication: HYPERTENSION
     Dosage: 50MG PER DAY
     Route: 048
     Dates: end: 20080512
  6. ACYCLOVIR SODIUM [Concomitant]
     Indication: RASH
     Dosage: 800MG FIVE TIMES PER DAY
     Route: 048
     Dates: start: 20080509, end: 20080514
  7. ADCAL D3 [Concomitant]
     Indication: DRUG USE FOR UNKNOWN INDICATION
     Route: 048
  8. ACETAMINOPHEN [Concomitant]
     Indication: DRUG USE FOR UNKNOWN INDICATION
     Dosage: 1G AS REQUIRED
     Route: 048
  9. OXYNORM [Concomitant]
     Indication: DRUG USE FOR UNKNOWN INDICATION
     Dosage: 2.5MG AS REQUIRED
     Route: 048

REACTIONS (5)
  - CELLULITIS [None]
  - METASTASES TO BONE [None]
  - MUSCULOSKELETAL PAIN [None]
  - PYREXIA [None]
  - RASH ERYTHEMATOUS [None]
